FAERS Safety Report 10855713 (Version 1)
Quarter: 2015Q1

REPORT INFORMATION
  Report Type: Spontaneous
  Country: US (occurrence: None)
  Receive Date: 20150218
  Receipt Date: 20150218
  Transmission Date: 20150721
  Serious: Yes (Other)
  Sender: FDA-Public Use
  Company Number: None

PATIENT
  Age: 40 Year
  Sex: Female
  Weight: 58.06 kg

DRUGS (5)
  1. ALPRAZOLAM. [Concomitant]
     Active Substance: ALPRAZOLAM
  2. AZITHROMYCIN [Suspect]
     Active Substance: AZITHROMYCIN ANHYDROUS
     Indication: BRONCHITIS
     Dosage: 6 TABLET, ONCE DAILY, TAKEN BY MOUTH
     Route: 048
     Dates: start: 20150217, end: 20150217
  3. PRISTIQ EXTENDED RELEASE [Concomitant]
     Active Substance: DESVENLAFAXINE SUCCINATE
  4. LEVOTHYROXIN [Concomitant]
     Active Substance: LEVOTHYROXINE
  5. TOPAMIRATE [Concomitant]

REACTIONS (5)
  - Dehydration [None]
  - Flatulence [None]
  - Abdominal pain [None]
  - Hypersomnia [None]
  - Diarrhoea [None]

NARRATIVE: CASE EVENT DATE: 20150217
